FAERS Safety Report 6959928-0 (Version None)
Quarter: 2010Q3

REPORT INFORMATION
  Report Type: 
  Country: None (occurrence: None)
  Receive Date: 20100901
  Receipt Date: 20100825
  Transmission Date: 20110219
  Serious: Yes (Hospitalization)
  Sender: FDA-Public Use
  Company Number: JP-EISAI INC.-E2090-01272-SPO-JP

PATIENT
  Sex: Female

DRUGS (28)
  1. EXCEGRAN [Suspect]
     Indication: CONVULSION
     Dosage: 100 MG DAILY
     Route: 048
     Dates: start: 20100615, end: 20100715
  2. COTRIM [Suspect]
     Indication: INFECTION PROPHYLAXIS
     Route: 048
     Dates: start: 20100526, end: 20100606
  3. TAKEPRON [Suspect]
     Route: 048
     Dates: start: 20100520, end: 20100714
  4. PURSENNID [Concomitant]
     Indication: CONSTIPATION
     Route: 048
     Dates: end: 20100714
  5. LOXONIN [Concomitant]
     Indication: BONE PAIN
     Route: 048
  6. METHYCOBAL [Concomitant]
     Route: 048
     Dates: end: 20100714
  7. ADETPHOS KOWA [Concomitant]
     Indication: DIZZINESS
     Route: 048
     Dates: end: 20100714
  8. SELBEX [Concomitant]
     Route: 048
  9. MENILET [Concomitant]
     Route: 048
     Dates: end: 20100714
  10. DECADRON [Concomitant]
     Route: 048
     Dates: start: 20100601, end: 20100715
  11. AROMASIN [Concomitant]
     Indication: BREAST CANCER RECURRENT
     Route: 048
     Dates: start: 20100605, end: 20100715
  12. MYSLEE [Concomitant]
     Indication: INSOMNIA
     Route: 048
     Dates: end: 20100714
  13. MAGLAX [Concomitant]
     Indication: CONSTIPATION
     Route: 048
     Dates: end: 20100714
  14. MEROPENEM [Concomitant]
     Dates: start: 20100715
  15. NEUPOGEN [Concomitant]
     Dates: start: 20100715, end: 20100729
  16. DALACIN [Concomitant]
     Dates: start: 20100715
  17. EXACIN [Concomitant]
     Dates: start: 20100716
  18. CIPROFLOXACIN HCL [Concomitant]
     Dates: start: 20100716
  19. PRODIF [Concomitant]
     Dosage: UNKNOWN
     Dates: start: 20100716, end: 20100722
  20. PRODIF [Concomitant]
     Dosage: UNKNOWN
     Dates: start: 20100723, end: 20100726
  21. PRODIF [Concomitant]
     Dosage: UNKNOWN
     Dates: start: 20100727, end: 20100727
  22. MAXIPIME [Concomitant]
     Dates: start: 20100723, end: 20100726
  23. MAXIPIME [Concomitant]
     Dates: start: 20100727, end: 20100801
  24. MAXIPIME [Concomitant]
     Dates: start: 20100802, end: 20100805
  25. VANCOMYCIN [Concomitant]
     Dates: start: 20100727, end: 20100801
  26. VANCOMYCIN [Concomitant]
     Dates: start: 20100802, end: 20100805
  27. AMBISOME [Concomitant]
     Dates: start: 20100728
  28. MINOCYCLINE HCL [Concomitant]
     Dates: start: 20100101, end: 20100803

REACTIONS (1)
  - AGRANULOCYTOSIS [None]
